FAERS Safety Report 6189625-3 (Version None)
Quarter: 2009Q2

REPORT INFORMATION
  Report Type: 
  Country: None (occurrence: None)
  Receive Date: 20090514
  Receipt Date: 20090325
  Transmission Date: 20091009
  Serious: Yes (Death, Disabling, Other)
  Sender: FDA-Public Use
  Company Number: US-BAYER-200912047NA

PATIENT
  Age: 43 Year
  Sex: Male
  Weight: 81 kg

DRUGS (31)
  1. MAGNEVIST [Suspect]
     Indication: NUCLEAR MAGNETIC RESONANCE IMAGING
     Dates: start: 20051206, end: 20051206
  2. MAGNEVIST [Suspect]
     Dates: start: 20060516, end: 20060516
  3. OMNISCAN [Suspect]
     Indication: NUCLEAR MAGNETIC RESONANCE IMAGING
  4. OPTIMARK [Suspect]
     Indication: NUCLEAR MAGNETIC RESONANCE IMAGING
  5. MULTIHANCE [Suspect]
     Indication: NUCLEAR MAGNETIC RESONANCE IMAGING
  6. PROHANCE [Suspect]
     Indication: NUCLEAR MAGNETIC RESONANCE IMAGING
  7. NORCO/MORPHINE [Concomitant]
  8. VIT B COMPLEX WITH C AND FOLIC ACID [Concomitant]
  9. MULTI-VITAMINS [Concomitant]
  10. LANOXIN [Concomitant]
  11. PHOSLO [Concomitant]
     Dosage: TOTAL DAILY DOSE: 6003 MG
     Route: 048
  12. PROTONIX [Concomitant]
  13. REGLAN [Concomitant]
  14. LEVOTHROID [Concomitant]
  15. COUMADIN [Concomitant]
  16. LOTREL [Concomitant]
  17. PRAVACHOL [Concomitant]
  18. NEURONTIN [Concomitant]
  19. AVINZA [Concomitant]
  20. LANTUS [Concomitant]
  21. NOVOLOG [Concomitant]
  22. RENAVITE [Concomitant]
  23. EPOGEN [Concomitant]
     Dosage: WITH EACH HD
  24. ACIPHEX [Concomitant]
  25. NEPHROCAPS [Concomitant]
  26. QUININE [Concomitant]
  27. IMODIUM [Concomitant]
  28. IMURAN [Concomitant]
     Dates: start: 19910101
  29. CYCLOSPORINE [Concomitant]
     Dosage: TOTAL DAILY DOSE: 100 MG
     Dates: start: 19910101, end: 19910101
  30. ACYCLOVIR [Concomitant]
     Dates: start: 19910101
  31. GASTROMARK [Concomitant]
     Indication: NUCLEAR MAGNETIC RESONANCE IMAGING ABDOMINAL
     Dates: start: 20060323, end: 20060323

REACTIONS (21)
  - ANHEDONIA [None]
  - ANXIETY [None]
  - DRY SKIN [None]
  - EMOTIONAL DISTRESS [None]
  - ERYTHEMA [None]
  - GENERAL PHYSICAL HEALTH DETERIORATION [None]
  - JOINT CONTRACTURE [None]
  - JOINT RANGE OF MOTION DECREASED [None]
  - NEPHROGENIC SYSTEMIC FIBROSIS [None]
  - NEUROPATHIC ARTHROPATHY [None]
  - OEDEMA [None]
  - PAIN [None]
  - POST INFLAMMATORY PIGMENTATION CHANGE [None]
  - RASH GENERALISED [None]
  - SKIN EXFOLIATION [None]
  - SKIN HYPERTROPHY [None]
  - SKIN INDURATION [None]
  - SKIN TIGHTNESS [None]
  - SKIN ULCER [None]
  - STASIS DERMATITIS [None]
  - XEROSIS [None]
